FAERS Safety Report 9044984 (Version 1)
Quarter: 2013Q1

REPORT INFORMATION
  Report Type: Report from Study
  Country: US (occurrence: US)
  Receive Date: 20130130
  Receipt Date: 20130130
  Transmission Date: 20140127
  Serious: No
  Sender: FDA-Public Use
  Company Number: US-ABBOTT-12P-163-0962332-00

PATIENT
  Age: 64 Year
  Sex: Female

DRUGS (5)
  1. HUMIRA 40 MG/0.8 ML PEN [Suspect]
     Indication: RHEUMATOID ARTHRITIS
     Dates: start: 20120613
  2. BENICAR [Concomitant]
     Indication: HYPERTENSION
     Dosage: 20 MG EVERY DAY
  3. VITAMINS OTC [Concomitant]
     Indication: VITAMIN SUPPLEMENTATION
  4. PREDNISONE [Concomitant]
     Indication: PAIN
     Dosage: 10 MG DAILY
  5. PREDNISONE [Concomitant]
     Dosage: 20 MG DAILY

REACTIONS (3)
  - Fatigue [Not Recovered/Not Resolved]
  - Musculoskeletal pain [Not Recovered/Not Resolved]
  - Insomnia [Not Recovered/Not Resolved]
